FAERS Safety Report 8835293 (Version 1)
Quarter: 2012Q4

REPORT INFORMATION
  Report Type: Report from Study
  Country: RU (occurrence: RU)
  Receive Date: 20121011
  Receipt Date: 20121011
  Transmission Date: 20130627
  Serious: Yes (Other)
  Sender: FDA-Public Use
  Company Number: RU-ROCHE-1142960

PATIENT
  Age: 47 Year
  Sex: Male
  Weight: 98 kg

DRUGS (7)
  1. AVASTIN [Suspect]
     Indication: COLON CANCER
     Route: 042
     Dates: start: 20120224, end: 20120903
  2. XELODA [Suspect]
     Indication: COLON CANCER
     Route: 048
     Dates: start: 20120224
  3. XELODA [Suspect]
     Route: 048
  4. XELODA [Suspect]
     Route: 048
     Dates: end: 20120903
  5. OXALIPLATIN [Concomitant]
     Indication: COLON CANCER
     Route: 041
     Dates: start: 20120224
  6. OXALIPLATIN [Concomitant]
     Route: 041
  7. OXALIPLATIN [Concomitant]
     Route: 041
     Dates: end: 20120903

REACTIONS (2)
  - Disease progression [Unknown]
  - Metastases to peritoneum [Unknown]
